FAERS Safety Report 7056347-6 (Version None)
Quarter: 2010Q4

REPORT INFORMATION
  Report Type: 
  Country: None (occurrence: None)
  Receive Date: 20101021
  Receipt Date: 20101015
  Transmission Date: 20110411
  Serious: Yes (Life-Threatening, Other)
  Sender: FDA-Public Use
  Company Number: DE-ABBOTT-10P-062-0678483-00

PATIENT
  Sex: Female

DRUGS (6)
  1. CLARITHROMYCIN TABLETS [Suspect]
     Indication: PRODUCT USED FOR UNKNOWN INDICATION
     Dosage: OVERDOSE - SINGLE DOSAGE
     Route: 048
     Dates: start: 20101007, end: 20101007
  2. ESCITALOPRAM [Suspect]
     Indication: PRODUCT USED FOR UNKNOWN INDICATION
     Dosage: OVERDOSE:  UNKNOWN SINGLE DOSAGE
     Route: 048
     Dates: start: 20101007, end: 20101007
  3. PARACETAMOL [Suspect]
     Indication: PRODUCT USED FOR UNKNOWN INDICATION
     Dosage: OVERDOSE:  SINGLE DOSAGE
     Dates: start: 20101007, end: 20101007
  4. IBUPROFEN TABLETS [Suspect]
     Indication: PRODUCT USED FOR UNKNOWN INDICATION
     Dosage: OVERDOSE:  8000 - 12000 MG (SINGLE DOSAGE)
     Route: 048
     Dates: start: 20101007, end: 20101007
  5. BROMAZEPAM [Suspect]
     Indication: PRODUCT USED FOR UNKNOWN INDICATION
     Dosage: OVERDOSE:  SINGLE DOSAGE
     Route: 048
     Dates: start: 20101007, end: 20101007
  6. ALCOHOL [Suspect]
     Indication: PRODUCT USED FOR UNKNOWN INDICATION
     Dosage: OVERDOSE: UNKNOWN SINGLE AMOUNT (1.4 PER MILLE)
     Dates: start: 20101007, end: 20101007

REACTIONS (5)
  - ACIDOSIS [None]
  - LOSS OF CONSCIOUSNESS [None]
  - MULTIPLE DRUG OVERDOSE INTENTIONAL [None]
  - RESPIRATORY DEPRESSION [None]
  - SUICIDE ATTEMPT [None]
